FAERS Safety Report 14322077 (Version 2)
Quarter: 2018Q1

REPORT INFORMATION
  Report Type: Spontaneous
  Country: GR (occurrence: GR)
  Receive Date: 20171225
  Receipt Date: 20180129
  Transmission Date: 20180509
  Serious: Yes (Other)
  Sender: FDA-Public Use
  Company Number: GR-AXELLIA-001226

PATIENT
  Age: 51 Year
  Sex: Female

DRUGS (1)
  1. VANCOMYCIN [Suspect]
     Active Substance: VANCOMYCIN
     Indication: CATARACT OPERATION
     Dosage: DOSE: 1.0 MG/0.2 ML,??INTRACAMERAL ROUTE
     Route: 031

REACTIONS (1)
  - Retinal vasculitis [Recovered/Resolved]
